FAERS Safety Report 19527176 (Version 3)
Quarter: 2021Q3

REPORT INFORMATION
  Report Type: Other
  Country: US (occurrence: US)
  Receive Date: 20210713
  Receipt Date: 20210828
  Transmission Date: 20211014
  Serious: Yes (Hospitalization)
  Sender: FDA-Public Use
  Company Number: US-NEUROCRINE BIOSCIENCES INC.-2021NBI03615

PATIENT

DRUGS (2)
  1. INGREZZA [Suspect]
     Active Substance: VALBENAZINE
     Dosage: 80 MILLIGRAM, QD
     Route: 048
     Dates: start: 20210707
  2. INGREZZA [Suspect]
     Active Substance: VALBENAZINE
     Indication: TARDIVE DYSKINESIA
     Dosage: 40 MILLIGRAM, QD
     Route: 048
     Dates: start: 20210525, end: 20210624

REACTIONS (7)
  - Balance disorder [Unknown]
  - Hypophagia [Unknown]
  - Fall [Unknown]
  - Drug ineffective [Unknown]
  - Injury [Unknown]
  - Pneumonia [Unknown]
  - Asthenia [Unknown]
